FAERS Safety Report 10486293 (Version 3)
Quarter: 2015Q1

REPORT INFORMATION
  Report Type: Spontaneous
  Country: JP (occurrence: JP)
  Receive Date: 20141001
  Receipt Date: 20150217
  Transmission Date: 20150720
  Serious: Yes (Death, Other)
  Sender: FDA-Public Use
  Company Number: JP-JNJFOC-20140924257

PATIENT
  Age: 47 Year
  Sex: Male
  Weight: 55 kg

DRUGS (5)
  1. XEPLION [Suspect]
     Active Substance: PALIPERIDONE PALMITATE
     Indication: SCHIZOPHRENIA
     Route: 030
     Dates: start: 20140307, end: 20140502
  2. TASMOLIN [Suspect]
     Active Substance: BIPERIDEN
     Indication: TREMOR
     Route: 048
     Dates: start: 20140502, end: 20140506
  3. XEPLION [Suspect]
     Active Substance: PALIPERIDONE PALMITATE
     Indication: SCHIZOPHRENIA
     Route: 030
     Dates: start: 20140131, end: 20140131
  4. XEPLION [Suspect]
     Active Substance: PALIPERIDONE PALMITATE
     Indication: SCHIZOPHRENIA
     Route: 030
     Dates: start: 20140207, end: 20140207
  5. FLUNITRAZEPAM [Suspect]
     Active Substance: FLUNITRAZEPAM
     Indication: INSOMNIA
     Route: 048
     Dates: start: 20140104, end: 20140506

REACTIONS (5)
  - Toxicity to various agents [Fatal]
  - Completed suicide [Fatal]
  - Schizophrenia [Not Recovered/Not Resolved]
  - Tremor [Not Recovered/Not Resolved]
  - Intentional overdose [Fatal]

NARRATIVE: CASE EVENT DATE: 20140502
